FAERS Safety Report 23447827 (Version 3)
Quarter: 2024Q1

REPORT INFORMATION
  Report Type: Spontaneous
  Country: US (occurrence: US)
  Receive Date: 20240126
  Receipt Date: 20240306
  Transmission Date: 20240410
  Serious: Yes (Other)
  Sender: FDA-Public Use
  Company Number: US-Eisai-EC-2024-156950

PATIENT
  Age: 80 Year
  Sex: Female
  Weight: 73.2 kg

DRUGS (2)
  1. LEQEMBI [Suspect]
     Active Substance: LECANEMAB-IRMB
     Indication: Dementia Alzheimer^s type
     Route: 042
     Dates: start: 20231221, end: 20240104
  2. LEQEMBI [Suspect]
     Active Substance: LECANEMAB-IRMB
     Route: 042
     Dates: start: 20240118, end: 20240118

REACTIONS (3)
  - Amyloid related imaging abnormality-microhaemorrhages and haemosiderin deposits [Recovering/Resolving]
  - Amyloid related imaging abnormality-oedema/effusion [Recovering/Resolving]
  - Superficial siderosis of central nervous system [Recovering/Resolving]

NARRATIVE: CASE EVENT DATE: 20240122
